FAERS Safety Report 19577809 (Version 2)
Quarter: 2021Q4

REPORT INFORMATION
  Report Type: Spontaneous
  Country: CA (occurrence: CA)
  Receive Date: 20210719
  Receipt Date: 20211103
  Transmission Date: 20220303
  Serious: Yes (Other)
  Sender: FDA-Public Use
  Company Number: CA-NOVARTISPH-NVSC2021CA153874

PATIENT
  Age: 54 Year
  Sex: Male

DRUGS (5)
  1. SANDOSTATIN LAR DEPOT [Suspect]
     Active Substance: OCTREOTIDE ACETATE
     Indication: Neuroendocrine tumour
     Dosage: 20 MG, QMO (1 EVERY 1 MONTH)
     Route: 030
  2. SANDOSTATIN LAR DEPOT [Suspect]
     Active Substance: OCTREOTIDE ACETATE
     Indication: Acromegaly
     Dosage: UNK
     Route: 030
  3. SANDOSTATIN LAR DEPOT [Suspect]
     Active Substance: OCTREOTIDE ACETATE
  4. AMLODIPINE BESYLATE [Suspect]
     Active Substance: AMLODIPINE BESYLATE
     Indication: Product used for unknown indication
     Dosage: UNK
     Route: 065
  5. WARFARIN [Concomitant]
     Active Substance: WARFARIN
     Indication: Product used for unknown indication
     Dosage: UNK
     Route: 065

REACTIONS (12)
  - Concomitant disease aggravated [Not Recovered/Not Resolved]
  - Back disorder [Not Recovered/Not Resolved]
  - Blood pressure increased [Not Recovered/Not Resolved]
  - Body temperature decreased [Not Recovered/Not Resolved]
  - Confusional state [Not Recovered/Not Resolved]
  - Gait disturbance [Not Recovered/Not Resolved]
  - Anxiety [Not Recovered/Not Resolved]
  - Muscle strain [Not Recovered/Not Resolved]
  - Nervousness [Not Recovered/Not Resolved]
  - Myalgia [Not Recovered/Not Resolved]
  - Needle issue [Not Recovered/Not Resolved]
  - Injection site pain [Not Recovered/Not Resolved]
